FAERS Safety Report 4308071-8 (Version None)
Quarter: 2004Q1

REPORT INFORMATION
  Report Type: 
  Country: None (occurrence: None)
  Receive Date: 20040301
  Receipt Date: 20030423
  Transmission Date: 20041129
  Serious: No
  Sender: FDA-Public Use
  Company Number: US-BRISTOL-MYERS SQUIBB COMPANY-12254504

PATIENT
  Age: 54 Year
  Sex: Female
  Weight: 84 kg

DRUGS (6)
  1. METFORMIN HCL [Suspect]
     Indication: DIABETES MELLITUS NON-INSULIN-DEPENDENT
  2. AVANDIA [Concomitant]
  3. LIPITOR [Concomitant]
  4. ACCUPRIL [Concomitant]
  5. FEMHRT [Concomitant]
  6. ARTHROTEC [Concomitant]

REACTIONS (1)
  - UNEVALUABLE EVENT [None]
